FAERS Safety Report 5559326-0 (Version None)
Quarter: 2007Q4

REPORT INFORMATION
  Report Type: 
  Country: None (occurrence: None)
  Receive Date: 20071214
  Receipt Date: 20070926
  Transmission Date: 20080405
  Serious: No
  Sender: FDA-Public Use
  Company Number: US-ABBOTT-07P-163-0418928-00

PATIENT
  Sex: Female
  Weight: 83.082 kg

DRUGS (10)
  1. HUMIRA [Suspect]
     Indication: COLITIS ULCERATIVE
     Route: 058
     Dates: start: 20070921
  2. HUMIRA [Suspect]
     Dosage: LOADING DOSE
     Route: 058
     Dates: start: 20070907, end: 20070921
  3. PREDNISONE [Concomitant]
     Indication: COLITIS ULCERATIVE
     Route: 048
  4. MESALAMINE [Concomitant]
     Indication: COLITIS ULCERATIVE
     Route: 048
  5. GLIPIZIDE [Concomitant]
     Indication: DIABETES MELLITUS
     Route: 048
  6. WARFARIN SODIUM [Concomitant]
     Indication: THROMBOSIS
     Route: 048
  7. WARFARIN SODIUM [Concomitant]
     Route: 048
  8. OXYCODONE HCL [Concomitant]
     Indication: PAIN
     Dosage: 7.5/325MG (UNIT DOSE)
     Route: 048
  9. FERROUS SULFATE TAB [Concomitant]
     Indication: MINERAL SUPPLEMENTATION
     Route: 048
  10. ALENDRONATE SODIUM [Concomitant]
     Indication: OSTEOPENIA
     Route: 048

REACTIONS (1)
  - INJECTION SITE HAEMORRHAGE [None]
